FAERS Safety Report 9444613 (Version 1)
Quarter: 2013Q3

REPORT INFORMATION
  Report Type: Spontaneous
  Country: US (occurrence: US)
  Receive Date: 20130807
  Receipt Date: 20130807
  Transmission Date: 20140515
  Serious: No
  Sender: FDA-Public Use
  Company Number: US-PFIZER INC-2013228089

PATIENT
  Sex: Female

DRUGS (1)
  1. ADVIL [Suspect]
     Dosage: 400 MG, 4 TIMES A DAY

REACTIONS (2)
  - Overdose [Unknown]
  - Abdominal discomfort [Not Recovered/Not Resolved]
